FAERS Safety Report 20301887 (Version 1)
Quarter: 2022Q1

REPORT INFORMATION
  Report Type: Spontaneous
  Country: PR (occurrence: PR)
  Receive Date: 20220105
  Receipt Date: 20220105
  Transmission Date: 20220423
  Serious: No
  Sender: FDA-Public Use
  Company Number: PR-ABBVIE-21K-131-3889453-00

PATIENT
  Age: 60 Year
  Sex: Female

DRUGS (2)
  1. VENCLEXTA [Suspect]
     Active Substance: VENETOCLAX
     Indication: Bone marrow transplant
     Route: 048
     Dates: start: 202102
  2. DECITABINE [Concomitant]
     Active Substance: DECITABINE
     Indication: Bone marrow transplant
     Dates: start: 202102

REACTIONS (1)
  - Off label use [Unknown]

NARRATIVE: CASE EVENT DATE: 20210101
